FAERS Safety Report 8598242-7 (Version None)
Quarter: 2012Q3

REPORT INFORMATION
  Report Type: 
  Country: None (occurrence: None)
  Receive Date: 20120816
  Receipt Date: 20120809
  Transmission Date: 20120928
  Serious: Yes (Hospitalization)
  Sender: FDA-Public Use
  Company Number: US-CELGENEUS-163-20785-12081176

PATIENT
  Sex: Male
  Weight: 73.321 kg

DRUGS (10)
  1. ATIVAN [Concomitant]
     Route: 065
  2. LIDOCAINE [Concomitant]
     Dosage: 20 MILLIGRAM
     Route: 061
  3. THALOMID [Suspect]
     Indication: MULTIPLE MYELOMA
     Dosage: 100 MILLIGRAM
     Route: 048
     Dates: start: 20120606
  4. HYDROMORPHONE HYDROCHLORIDE [Concomitant]
     Route: 065
  5. NEURONTIN [Concomitant]
     Route: 065
  6. ACYCLOVIR [Concomitant]
     Dosage: 1600 MILLIGRAM
     Route: 065
  7. AMLODIPINE [Concomitant]
     Dosage: 2.5 MILLIGRAM
     Route: 065
  8. CIPROFLOXACIN HCL [Concomitant]
     Dosage: 1000 MILLIGRAM
     Route: 065
  9. OXYCONTIN [Concomitant]
     Route: 065
  10. FLUCONAZOLE [Concomitant]
     Dosage: 2
     Route: 048

REACTIONS (2)
  - FALL [None]
  - HIP FRACTURE [None]
